FAERS Safety Report 8388225-4 (Version None)
Quarter: 2012Q2

REPORT INFORMATION
  Report Type: 
  Country: None (occurrence: None)
  Receive Date: 20120525
  Receipt Date: 20120521
  Transmission Date: 20120825
  Serious: Yes (Hospitalization)
  Sender: FDA-Public Use
  Company Number: JP-ABBOTT-11P-087-0861944-00

PATIENT
  Age: 66 Year
  Sex: Male

DRUGS (5)
  1. EFAVIRENZ [Concomitant]
     Indication: HIV INFECTION
     Dosage: DAILY DOSE: 600MG
     Dates: start: 20111112
  2. EPZICOM [Suspect]
     Indication: HIV INFECTION
     Route: 048
     Dates: start: 20101014, end: 20101107
  3. NORVIR [Suspect]
     Indication: HIV INFECTION
     Route: 048
     Dates: start: 20101014, end: 20101107
  4. REYATAZ [Suspect]
     Indication: HIV INFECTION
     Route: 048
     Dates: start: 20101014, end: 20101107
  5. EPZICOM [Suspect]
     Dosage: 1T/DAY
     Dates: start: 20111112

REACTIONS (1)
  - RENAL DISORDER [None]
